FAERS Safety Report 15685974 (Version 1)
Quarter: 2018Q4

REPORT INFORMATION
  Report Type: Spontaneous
  Country: US (occurrence: US)
  Receive Date: 20181204
  Receipt Date: 20181204
  Transmission Date: 20190205
  Serious: No
  Sender: FDA-Public Use
  Company Number: US-SA-2018SA324842

PATIENT
  Age: 63 Year
  Sex: Female
  Weight: 65.76 kg

DRUGS (15)
  1. LIDOCAINE/PRILOCAINE [Concomitant]
     Active Substance: LIDOCAINE\PRILOCAINE
     Indication: PREMEDICATION
     Dosage: 2.5 %, UNK
     Route: 061
     Dates: start: 20181009
  2. ALPHA LIPOIC ACID [Concomitant]
     Active Substance: .ALPHA.-LIPOIC ACID
     Dosage: 300 MG, QD,
     Route: 048
     Dates: start: 20180611
  3. C 500 [ASCORBIC ACID] [Concomitant]
     Dosage: 500 MG, QD
     Route: 048
     Dates: start: 20180611
  4. TURMERIC [CURCUMA LONGA] [Concomitant]
     Dosage: 500 MG,QD
     Route: 048
     Dates: start: 20180611
  5. NORMAL SALINE [Concomitant]
     Active Substance: SODIUM CHLORIDE
     Dosage: 0.9 %
     Route: 042
     Dates: start: 20180910
  6. STERILE WATER [Concomitant]
     Active Substance: WATER
     Dosage: 13 ML, AS DIRECTED
     Route: 042
     Dates: start: 20180910
  7. NATURAL BALANCED B-100 [Concomitant]
     Dosage: UNK  1 TABLET, QD
     Route: 048
     Dates: start: 20180830
  8. FABRAZYME [Suspect]
     Active Substance: AGALSIDASE BETA
     Indication: FABRY^S DISEASE
     Dosage: 65 MG, QOW
     Route: 041
     Dates: start: 20180618
  9. SODIUM CHLORIDE. [Concomitant]
     Active Substance: SODIUM CHLORIDE
     Dosage: 0.9 %
     Route: 042
     Dates: start: 20180910
  10. HEPARIN [Concomitant]
     Active Substance: HEPARIN SODIUM
     Dosage: 100 UN/ML AS DIRECTED
     Route: 042
     Dates: start: 20180910
  11. ASPIRIN [ACETYLSALICYLIC ACID] [Concomitant]
     Active Substance: ASPIRIN
     Dosage: 81 MG,1 TABLET, QD
     Route: 048
     Dates: start: 20180611
  12. DIPHENHYDRAMINE. [Concomitant]
     Active Substance: DIPHENHYDRAMINE
     Indication: ANAPHYLACTIC REACTION
     Dosage: 25 MG, EVERY 30 MIN
     Route: 048
     Dates: start: 20180910
  13. COENZYME Q10 [Concomitant]
     Active Substance: UBIDECARENONE
     Dosage: 100 MG, 2 CAPSULE QD
     Route: 048
     Dates: start: 20180611
  14. EPINEPHRINE. [Concomitant]
     Active Substance: EPINEPHRINE
     Indication: ANAPHYLACTIC REACTION
     Dosage: 0.3 MG
     Route: 030
     Dates: start: 20180910
  15. MULTIVITAMINS [VITAMINS NOS] [Concomitant]
     Active Substance: VITAMINS
     Dosage: 1 DF, QD
     Route: 048
     Dates: start: 20180611

REACTIONS (1)
  - Device issue [Not Recovered/Not Resolved]

NARRATIVE: CASE EVENT DATE: 2018
